FAERS Safety Report 25995545 (Version 1)
Quarter: 2025Q4

REPORT INFORMATION
  Report Type: Spontaneous
  Country: EU (occurrence: EU)
  Receive Date: 20251104
  Receipt Date: 20251104
  Transmission Date: 20260117
  Serious: Yes (Other)
  Sender: MYLAN
  Company Number: None

PATIENT
  Age: 46 Year
  Sex: Male

DRUGS (1)
  1. ALPRAZOLAM [Suspect]
     Active Substance: ALPRAZOLAM
     Indication: Product used for unknown indication
     Dosage: 60 MILLIGRAM (TOOK TWO BOXES OF 30 TABLETS)
     Dates: start: 20250922, end: 20250922

REACTIONS (4)
  - Toxicity to various agents [Recovered/Resolved]
  - Intentional self-injury [Unknown]
  - Substance abuse [Unknown]
  - Drug abuse [Recovered/Resolved]

NARRATIVE: CASE EVENT DATE: 20250922
